FAERS Safety Report 4679530-3 (Version None)
Quarter: 2005Q2

REPORT INFORMATION
  Report Type: 
  Country: None (occurrence: None)
  Receive Date: 20050311
  Receipt Date: 20050311
  Transmission Date: 20051028
  Serious: Yes (Disabling)
  Sender: FDA-Public Use
  Company Number: None

PATIENT
  Sex: Female
  Weight: 115.2136 kg

DRUGS (1)
  1. BUSPIRONE HCL [Suspect]
     Indication: ANXIETY
     Dosage: 15 MG PO QID
     Route: 048
     Dates: start: 20030501

REACTIONS (3)
  - AGITATION [None]
  - ANXIETY [None]
  - PHARMACEUTICAL PRODUCT COMPLAINT [None]
